FAERS Safety Report 8251592-6 (Version None)
Quarter: 2012Q2

REPORT INFORMATION
  Report Type: 
  Country: None (occurrence: None)
  Receive Date: 20120402
  Receipt Date: 20120329
  Transmission Date: 20120825
  Serious: Yes (Death, Life-Threatening, Hospitalization)
  Sender: FDA-Public Use
  Company Number: FR-B.I. PHARMACEUTICALS,INC./RIDGEFIELD-2011-FF-00296FF

PATIENT
  Age: 45 Year
  Sex: Male

DRUGS (3)
  1. L-DOPA [Concomitant]
     Dosage: 187.5 MG
  2. PRAMIPEXOLE DIHYDROCHLORIDE [Suspect]
     Indication: PARKINSON'S DISEASE
     Dosage: 2.1 MG
     Route: 048
     Dates: end: 20090201
  3. PRAMIPEXOLE DIHYDROCHLORIDE [Suspect]
     Dosage: 3.15 MG
     Route: 048
     Dates: start: 20090201

REACTIONS (8)
  - SUICIDE ATTEMPT [None]
  - EXHIBITIONISM [None]
  - HYPERSEXUALITY [None]
  - PATHOLOGICAL GAMBLING [None]
  - MARITAL PROBLEM [None]
  - DEPRESSION [None]
  - COMPLETED SUICIDE [None]
  - IMPULSE-CONTROL DISORDER [None]
